FAERS Safety Report 10046436 (Version 1)
Quarter: 2014Q1

REPORT INFORMATION
  Report Type: Spontaneous
  Country: US (occurrence: US)
  Receive Date: 20140331
  Receipt Date: 20140331
  Transmission Date: 20141002
  Serious: No
  Sender: FDA-Public Use
  Company Number: US-BIOGENIDEC-2014BI027663

PATIENT
  Age: 62 Year
  Sex: Female

DRUGS (26)
  1. TECFIDERA [Suspect]
     Indication: MULTIPLE SCLEROSIS
     Route: 048
  2. ABILIFY [Concomitant]
  3. ADVAIR DISKUS [Concomitant]
  4. ALBUTEROL SULFATE [Concomitant]
  5. ALENDRONATE SODIUM [Concomitant]
  6. ALPRAZOLAM [Concomitant]
  7. ARICEPT [Concomitant]
  8. ATENOLOL [Concomitant]
  9. BACLOFEN [Concomitant]
  10. DONEPEZIL HCL [Concomitant]
  11. FENTANYL [Concomitant]
  12. FOSAMAX [Concomitant]
  13. LAMOTRIGINE [Concomitant]
  14. LEVALBUTEROL HCL [Concomitant]
  15. LIPITOR [Concomitant]
  16. LYCOPENE [Concomitant]
  17. OMEPRAZOLE-SODIUM BICARBONATE [Concomitant]
  18. OXYBUTYNIN CHLORIDE [Concomitant]
  19. PAROXETINE HCL [Concomitant]
  20. PERCOCET [Concomitant]
  21. SIMVASTATIN [Concomitant]
  22. VENLAFAXINE HCL [Concomitant]
  23. VICODIN [Concomitant]
  24. XANAX [Concomitant]
  25. CALCIUM CITRATE-VITAMIN D [Concomitant]
  26. CALTRATE 600 [Concomitant]

REACTIONS (1)
  - Asthenia [Not Recovered/Not Resolved]
